FAERS Safety Report 5095900-6 (Version None)
Quarter: 2006Q3

REPORT INFORMATION
  Report Type: 
  Country: None (occurrence: None)
  Receive Date: 20060905
  Receipt Date: 20060626
  Transmission Date: 20061208
  Serious: Yes (Other)
  Sender: FDA-Public Use
  Company Number: PHFR2006GB02545

PATIENT
  Age: 73 Year
  Sex: Male
  Weight: 85 kg

DRUGS (2)
  1. FEMARA [Suspect]
     Indication: BREAST CANCER MALE
     Dosage: 2.5MG
     Route: 048
     Dates: start: 20060125, end: 20060614
  2. TAMOXIFEN CITRATE [Concomitant]
     Indication: BREAST CANCER MALE
     Route: 065
     Dates: start: 20000701, end: 20051001

REACTIONS (3)
  - BLOOD CREATININE INCREASED [None]
  - METASTASES TO LYMPH NODES [None]
  - OBSTRUCTIVE UROPATHY [None]
